FAERS Safety Report 6356363-3 (Version None)
Quarter: 2009Q3

REPORT INFORMATION
  Report Type: 
  Country: None (occurrence: None)
  Receive Date: 20090915
  Receipt Date: 20090730
  Transmission Date: 20100115
  Serious: Yes (Hospitalization)
  Sender: FDA-Public Use
  Company Number: ES-PFIZER INC-2009248607

PATIENT
  Age: 75 Year

DRUGS (11)
  1. ALDACTONE [Suspect]
     Indication: HYPERTENSION
     Dosage: 100 MG, 1X/DAY
     Route: 048
     Dates: start: 20090403, end: 20090419
  2. LISINOPRIL [Interacting]
     Dosage: 20 MG, 1X/DAY
     Route: 048
     Dates: start: 20070101, end: 20090419
  3. OMEPRAZOL [Concomitant]
     Dosage: 20 MG, 1X/DAY
     Route: 048
     Dates: start: 20070101
  4. MINITRAN [Concomitant]
     Dosage: 80 UNK, 1X/DAY
  5. SEGURIL [Concomitant]
     Indication: HYPERTENSION
     Dosage: 80 MG, 1X/DAY
     Route: 048
     Dates: start: 20090403
  6. SINTROM [Concomitant]
     Dosage: UNK
     Dates: start: 20080101
  7. SPIRIVA [Concomitant]
  8. SYMBICORT [Concomitant]
  9. AMIODARONE HCL [Concomitant]
     Indication: ATRIAL FIBRILLATION
     Dosage: 1 G, WEEKLY
     Route: 048
     Dates: start: 20070101
  10. VENTOLIN [Concomitant]
  11. ZYLORIC ^FAES^ [Concomitant]
     Indication: HYPERURICAEMIA
     Dosage: 100 MG, 1X/DAY
     Route: 048
     Dates: start: 20040101

REACTIONS (4)
  - ANGINA PECTORIS [None]
  - DRUG INTERACTION [None]
  - ELECTROCARDIOGRAM CHANGE [None]
  - HYPERKALAEMIA [None]
